FAERS Safety Report 11272540 (Version 1)
Quarter: 2015Q3

REPORT INFORMATION
  Report Type: Spontaneous
  Country: US (occurrence: None)
  Receive Date: 20150714
  Receipt Date: 20150714
  Transmission Date: 20151125
  Serious: Yes (Other)
  Sender: FDA-Public Use
  Company Number: None

PATIENT
  Age: 32 Year
  Sex: Female

DRUGS (3)
  1. ZOLOFT [Concomitant]
     Active Substance: SERTRALINE HYDROCHLORIDE
  2. WELLBUTRIN [Concomitant]
     Active Substance: BUPROPION HYDROCHLORIDE
  3. MIRENA [Suspect]
     Active Substance: LEVONORGESTREL

REACTIONS (7)
  - Feeling jittery [None]
  - Tachyphrenia [None]
  - Panic attack [None]
  - Sleep disorder [None]
  - Abdominal discomfort [None]
  - Tachycardia [None]
  - Fear [None]

NARRATIVE: CASE EVENT DATE: 20150616
